FAERS Safety Report 5415016-6 (Version None)
Quarter: 2007Q3

REPORT INFORMATION
  Report Type: 
  Country: None (occurrence: None)
  Receive Date: 20070814
  Receipt Date: 20070814
  Transmission Date: 20080115
  Serious: Yes (Hospitalization, Disabling, Other)
  Sender: FDA-Public Use
  Company Number: None

PATIENT
  Age: 60 Year
  Sex: Female
  Weight: 86.1834 kg

DRUGS (1)
  1. ARTHROTEC [Suspect]
     Indication: NEURALGIA
     Dosage: 75MG BID PO
     Route: 048
     Dates: start: 20050217, end: 20060901

REACTIONS (4)
  - CHEST PAIN [None]
  - CORONARY ARTERIAL STENT INSERTION [None]
  - NECK PAIN [None]
  - PAIN IN JAW [None]
